FAERS Safety Report 6862465-5 (Version None)
Quarter: 2010Q3

REPORT INFORMATION
  Report Type: 
  Country: None (occurrence: None)
  Receive Date: 20100719
  Receipt Date: 20100708
  Transmission Date: 20110219
  Serious: No
  Sender: FDA-Public Use
  Company Number: 010168

PATIENT
  Age: 90 Year
  Sex: Female

DRUGS (5)
  1. PLETAL [Suspect]
     Indication: CEREBRAL INFARCTION
     Dosage: 100 MG, BID, ORAL
     Route: 048
     Dates: start: 20100616, end: 20100619
  2. REZALTAS (OLMESARTAN MEDOXOMIL AZELNIDIPINE) [Suspect]
     Dosage: QD , ORAL
     Route: 048
     Dates: start: 20100602, end: 20100619
  3. LANSOPRAZOLE [Concomitant]
  4. CANDESARTAN CILEXETIL [Concomitant]
  5. ASPIRIN [Concomitant]

REACTIONS (2)
  - HYPOTENSION [None]
  - OVERDOSE [None]
